FAERS Safety Report 25697848 (Version 1)
Quarter: 2025Q3

REPORT INFORMATION
  Report Type: Report from Study
  Country: US (occurrence: US)
  Receive Date: 20250819
  Receipt Date: 20250819
  Transmission Date: 20251021
  Serious: Yes (Other)
  Sender: ALEXION PHARMACEUTICALS
  Company Number: US-AstraZeneca-CH-00931851A

PATIENT
  Age: 89 Year
  Sex: Female

DRUGS (1)
  1. ACALABRUTINIB [Suspect]
     Active Substance: ACALABRUTINIB
     Indication: Chronic lymphocytic leukaemia
     Dosage: 100 MILLIGRAM, BID
     Dates: start: 20220612

REACTIONS (2)
  - Macular degeneration [Unknown]
  - Throat irritation [Unknown]

NARRATIVE: CASE EVENT DATE: 20250815
